FAERS Safety Report 12448012 (Version 1)
Quarter: 2016Q2

REPORT INFORMATION
  Report Type: Spontaneous
  Country: FR (occurrence: FR)
  Receive Date: 20160608
  Receipt Date: 20160608
  Transmission Date: 20160815
  Serious: Yes (Hospitalization, Other)
  Sender: FDA-Public Use
  Company Number: FR-ELI_LILLY_AND_COMPANY-FR201605009397

PATIENT
  Age: 58 Year
  Sex: Male
  Weight: 77 kg

DRUGS (12)
  1. LYRICA [Suspect]
     Active Substance: PREGABALIN
     Indication: NEURALGIA
     Dosage: 150 MG, BID
     Route: 048
  2. KALEORID LP [Concomitant]
     Active Substance: POTASSIUM CHLORIDE
     Indication: HYPOKALAEMIA
     Dosage: 1 DF, QD
     Route: 048
  3. PRIALT [Suspect]
     Active Substance: ZICONOTIDE ACETATE
     Indication: NEURALGIA
     Dosage: UNK, UNKNOWN
     Route: 037
  4. VERSATIS [Concomitant]
     Active Substance: LIDOCAINE
     Indication: NEURALGIA
     Dosage: 1 DF, QD
     Route: 061
  5. KETAMINE RENAUDIN [Suspect]
     Active Substance: KETAMINE
     Indication: NEURALGIA
     Dosage: 85 MG, 8HOURS, 5 COURSES
     Route: 065
     Dates: start: 20150610, end: 20150708
  6. TRANSIPEG                          /00754501/ [Concomitant]
     Active Substance: POLYETHYLENE GLYCOL 3350
     Dosage: 2 DF, PRN
     Route: 048
  7. NORSET [Suspect]
     Active Substance: MIRTAZAPINE
     Indication: NEURALGIA
     Dosage: 15 MG, QD
     Route: 048
     Dates: start: 201509
  8. NAROPEINE [Suspect]
     Active Substance: ROPIVACAINE HYDROCHLORIDE
     Indication: NEURALGIA
     Dosage: UNK, UNKNOWN
     Route: 037
  9. TRANSIPEG                          /00754501/ [Concomitant]
     Active Substance: POLYETHYLENE GLYCOL 3350
     Indication: CONSTIPATION
     Dosage: 1 DF, PRN
     Route: 048
  10. CYMBALTA [Suspect]
     Active Substance: DULOXETINE HYDROCHLORIDE
     Indication: NEURALGIA
     Dosage: 1 DF, QD
     Route: 048
     Dates: start: 201509
  11. MORPHINE [Suspect]
     Active Substance: MORPHINE
     Indication: NEURALGIA
     Dosage: UNK, UNKNOWN
     Route: 037
     Dates: start: 2014
  12. BACLOFENE [Suspect]
     Active Substance: BACLOFEN
     Indication: NEURALGIA
     Dosage: UNK, UNKNOWN
     Route: 037

REACTIONS (10)
  - Sepsis [Recovered/Resolved]
  - Confusional state [Recovered/Resolved]
  - Pain [Recovered/Resolved]
  - Respiratory distress [Recovered/Resolved]
  - Hypoxia [Recovered/Resolved]
  - General physical health deterioration [Recovered/Resolved]
  - Lung disorder [Recovered/Resolved]
  - Asthenia [Recovered/Resolved]
  - Somnolence [Recovered/Resolved]
  - Blood creatinine decreased [Recovered/Resolved]

NARRATIVE: CASE EVENT DATE: 20151112
